FAERS Safety Report 9260564 (Version 1)
Quarter: 2013Q2

REPORT INFORMATION
  Report Type: Spontaneous
  Country: CA (occurrence: US)
  Receive Date: 20130426
  Receipt Date: 20130426
  Transmission Date: 20140414
  Serious: Yes (Hospitalization)
  Sender: FDA-Public Use
  Company Number: CA-RB-053225-13

PATIENT
  Age: 60 Year
  Sex: Female

DRUGS (2)
  1. DELSYM ADULT COUGH SYRUP ORANGE [Suspect]
     Indication: NASOPHARYNGITIS
     Route: 048
     Dates: start: 20130409
  2. REMERON [Suspect]
     Indication: DEPRESSION

REACTIONS (7)
  - Drug interaction [Unknown]
  - Mydriasis [Unknown]
  - Unevaluable event [Unknown]
  - Paraesthesia [Unknown]
  - Insomnia [Unknown]
  - Feeling abnormal [Not Recovered/Not Resolved]
  - Dizziness [Unknown]
